FAERS Safety Report 25882324 (Version 1)
Quarter: 2025Q4

REPORT INFORMATION
  Report Type: Report from Study
  Country: CO (occurrence: CO)
  Receive Date: 20251006
  Receipt Date: 20251006
  Transmission Date: 20260117
  Serious: Yes (Hospitalization)
  Sender: ALEXION PHARMACEUTICALS
  Company Number: CO-AstraZeneca-CH-00961022A

PATIENT
  Age: 19 Month
  Sex: Male
  Weight: 29 kg

DRUGS (2)
  1. ULTOMIRIS [Suspect]
     Active Substance: RAVULIZUMAB-CWVZ
     Indication: Paroxysmal nocturnal haemoglobinuria
     Dosage: 900 MILLIGRAM, Q2W
     Dates: start: 20250610, end: 20250610
  2. ULTOMIRIS [Suspect]
     Active Substance: RAVULIZUMAB-CWVZ
     Dosage: 2100 MILLIGRAM, Q8W
     Dates: start: 20250624

REACTIONS (6)
  - Headache [Recovering/Resolving]
  - Abdominal pain [Unknown]
  - Nausea [Unknown]
  - Asthenia [Unknown]
  - Laryngitis [Unknown]
  - Haemoglobin decreased [Unknown]

NARRATIVE: CASE EVENT DATE: 20250908
